FAERS Safety Report 24980776 (Version 1)
Quarter: 2025Q1

REPORT INFORMATION
  Report Type: Spontaneous
  Country: US (occurrence: None)
  Receive Date: 20250214
  Receipt Date: 20250214
  Transmission Date: 20250408
  Serious: Yes (Death)
  Sender: FDA-CTU
  Company Number: None

PATIENT
  Age: 47 Year
  Sex: Female
  Weight: 117.93 kg

DRUGS (10)
  1. KESIMPTA [Suspect]
     Active Substance: OFATUMUMAB
     Indication: Multiple sclerosis
     Dosage: FREQUENCY : MONTHLY;?
     Route: 058
     Dates: start: 20250108, end: 20250122
  2. ALBUTEROL [Concomitant]
     Active Substance: ALBUTEROL
  3. Breo 20-25 [Concomitant]
  4. CITALOPRAM [Suspect]
     Active Substance: CITALOPRAM
  5. DRONABINOL [Concomitant]
     Active Substance: DRONABINOL
  6. HYDROXYZINE [Concomitant]
     Active Substance: HYDROXYZINE HYDROCHLORIDE
  7. OXYCODONE [Concomitant]
     Active Substance: OXYCODONE
  8. PREGABALIN [Concomitant]
     Active Substance: PREGABALIN
  9. TIZANIDINE [Concomitant]
     Active Substance: TIZANIDINE
  10. IBUPROFEN [Concomitant]
     Active Substance: IBUPROFEN

REACTIONS (1)
  - Death [None]

NARRATIVE: CASE EVENT DATE: 20250122
